FAERS Safety Report 8070740-4 (Version None)
Quarter: 2012Q1

REPORT INFORMATION
  Report Type: 
  Country: None (occurrence: None)
  Receive Date: 20120125
  Receipt Date: 20120118
  Transmission Date: 20120608
  Serious: Yes (Other)
  Sender: FDA-Public Use
  Company Number: US-PFIZER INC-2012003100

PATIENT
  Sex: Female

DRUGS (1)
  1. ATIVAN [Suspect]
     Indication: PANIC ATTACK
     Dosage: UNK

REACTIONS (7)
  - MALAISE [None]
  - PNEUMONIA [None]
  - NASOPHARYNGITIS [None]
  - IMMUNE SYSTEM DISORDER [None]
  - PANIC ATTACK [None]
  - EPSTEIN-BARR VIRUS INFECTION [None]
  - WEIGHT ABNORMAL [None]
